FAERS Safety Report 22135093 (Version 1)
Quarter: 2023Q1

REPORT INFORMATION
  Report Type: Spontaneous
  Country: US (occurrence: US)
  Receive Date: 20230324
  Receipt Date: 20230324
  Transmission Date: 20230418
  Serious: No
  Sender: FDA-Public Use
  Company Number: US-STRIDES ARCOLAB LIMITED-2022SP011117

PATIENT
  Age: 38 Year
  Sex: Female

DRUGS (4)
  1. CETIRIZINE [Suspect]
     Active Substance: CETIRIZINE HYDROCHLORIDE
     Indication: Urticaria aquagenic
     Dosage: UNK
     Route: 065
  2. CETIRIZINE [Suspect]
     Active Substance: CETIRIZINE HYDROCHLORIDE
     Dosage: 20 MILLIGRAM, BID
     Route: 065
  3. RANITIDINE [Suspect]
     Active Substance: RANITIDINE
     Indication: Urticaria aquagenic
     Dosage: 150 MILLIGRAM, BID
     Route: 065
  4. CYPROHEPTADINE [Suspect]
     Active Substance: CYPROHEPTADINE
     Indication: Urticaria aquagenic
     Dosage: 4 MILLIGRAM, TID
     Route: 065

REACTIONS (2)
  - Therapy non-responder [Unknown]
  - Off label use [Unknown]
